FAERS Safety Report 5160899-0 (Version None)
Quarter: 2006Q4

REPORT INFORMATION
  Report Type: 
  Country: None (occurrence: None)
  Receive Date: 20061130
  Receipt Date: 20061122
  Transmission Date: 20070319
  Serious: Yes (Hospitalization)
  Sender: FDA-Public Use
  Company Number: FR-JNJFOC-20061105768

PATIENT
  Age: 77 Year
  Sex: Female
  Weight: 65 kg

DRUGS (8)
  1. LEUSTATINE [Suspect]
     Indication: LEUKAEMIA
     Route: 042
  2. BACTRIM DS [Suspect]
     Indication: DRUG USE FOR UNKNOWN INDICATION
  3. IKOREL [Concomitant]
  4. DIFFU-K [Concomitant]
  5. ZELITREX [Concomitant]
  6. COTAREG [Concomitant]
  7. PRIMPERAN TAB [Concomitant]
  8. NOROXIN [Concomitant]
     Indication: URINARY TRACT INFECTION

REACTIONS (3)
  - C-REACTIVE PROTEIN INCREASED [None]
  - PYREXIA [None]
  - RASH PAPULAR [None]
